FAERS Safety Report 24707455 (Version 1)
Quarter: 2024Q4

REPORT INFORMATION
  Report Type: Spontaneous
  Country: US (occurrence: None)
  Receive Date: 20241206
  Receipt Date: 20241206
  Transmission Date: 20250114
  Serious: Yes (Hospitalization)
  Sender: Public
  Company Number: None

PATIENT
  Sex: Male

DRUGS (2)
  1. HEMOFIL M [Suspect]
     Active Substance: ANTIHEMOPHILIC FACTOR HUMAN
     Indication: Factor VIII deficiency
     Dosage: 2000 UNITS DAILY FOR 3 DAYS IV?
     Route: 050
     Dates: start: 202409
  2. HEMOFIL M [Suspect]
     Active Substance: ANTIHEMOPHILIC FACTOR HUMAN
     Indication: Factor VIII deficiency
     Dosage: 2000 UNITS  THREE TIMES A WEEK IV
     Route: 050
     Dates: start: 202409

REACTIONS (2)
  - Joint microhaemorrhage [None]
  - Joint microhaemorrhage [None]
